FAERS Safety Report 5294794-3 (Version None)
Quarter: 2007Q2

REPORT INFORMATION
  Report Type: 
  Country: None (occurrence: None)
  Receive Date: 20070412
  Receipt Date: 20070410
  Transmission Date: 20071010
  Serious: Yes (Other)
  Sender: FDA-Public Use
  Company Number: GR-BRISTOL-MYERS SQUIBB COMPANY-13744552

PATIENT
  Age: 30 Year
  Sex: Female

DRUGS (1)
  1. LYSODREN [Suspect]
     Indication: ADRENAL CARCINOMA
     Route: 048
     Dates: end: 20070101

REACTIONS (6)
  - DRUG LEVEL INCREASED [None]
  - GASTROINTESTINAL HAEMORRHAGE [None]
  - OVERDOSE [None]
  - RENAL IMPAIRMENT [None]
  - SOMNOLENCE [None]
  - TREMOR [None]
